FAERS Safety Report 25659176 (Version 1)
Quarter: 2025Q3

REPORT INFORMATION
  Report Type: Report from Study
  Country: CA (occurrence: CA)
  Receive Date: 20250808
  Receipt Date: 20250808
  Transmission Date: 20251021
  Serious: Yes (Other)
  Sender: JOHNSON AND JOHNSON
  Company Number: CA-JNJFOC-20250530960

PATIENT
  Age: 64 Year
  Sex: Male

DRUGS (2)
  1. SIMPONI [Suspect]
     Active Substance: GOLIMUMAB
     Indication: Ankylosing spondylitis
     Route: 058
  2. SIMPONI [Suspect]
     Active Substance: GOLIMUMAB
     Indication: Colitis ulcerative
     Route: 058

REACTIONS (6)
  - Glucose tolerance impaired [Unknown]
  - Trigeminal neuralgia [Unknown]
  - Lip blister [Not Recovered/Not Resolved]
  - Osteoarthritis [Unknown]
  - Sleep apnoea syndrome [Unknown]
  - Infection [Unknown]

NARRATIVE: CASE EVENT DATE: 20250501
